FAERS Safety Report 8982166 (Version 2)
Quarter: 2013Q1

REPORT INFORMATION
  Report Type: Spontaneous
  Country: US (occurrence: US)
  Receive Date: 20121222
  Receipt Date: 20130123
  Transmission Date: 20140127
  Serious: Yes (Hospitalization, Other)
  Sender: FDA-Public Use
  Company Number: US-ASTRAZENECA-2012SE89477

PATIENT
  Age: 73 Year
  Sex: Female

DRUGS (2)
  1. FASLODEX [Suspect]
     Indication: BREAST CANCER METASTATIC
     Dosage: MONTHLY
     Route: 030
     Dates: start: 201205, end: 20121024
  2. ELAVIL [Concomitant]

REACTIONS (9)
  - Abscess [Unknown]
  - Lung disorder [Unknown]
  - Alpha haemolytic streptococcal infection [Unknown]
  - Haemophilus infection [Unknown]
  - Salivary gland disorder [Unknown]
  - Hypertension [Unknown]
  - Osteoarthritis [Unknown]
  - Gastrooesophageal reflux disease [Unknown]
  - Rash [Unknown]
